FAERS Safety Report 8809121 (Version 1)
Quarter: 2012Q4

REPORT INFORMATION
  Report Type: Spontaneous
  Country: DK (occurrence: None)
  Receive Date: 20120920
  Receipt Date: 20120920
  Transmission Date: 20130627
  Serious: Yes (Other)
  Sender: FDA-Public Use
  Company Number: 2012MA011282

PATIENT
  Age: 85 Year
  Sex: Female

DRUGS (1)
  1. ACETAMINOPHEN + CODEINE PHOSPHATE [Suspect]
     Indication: SHOULDER PAIN

REACTIONS (3)
  - Drug ineffective [None]
  - Constipation [None]
  - Visual impairment [None]
